FAERS Safety Report 4361378-0 (Version None)
Quarter: 2004Q2

REPORT INFORMATION
  Report Type: 
  Country: None (occurrence: None)
  Receive Date: 20040517
  Receipt Date: 20040505
  Transmission Date: 20050107
  Serious: Yes (Hospitalization)
  Sender: FDA-Public Use
  Company Number: 2004024327

PATIENT
  Sex: Male

DRUGS (2)
  1. NEURONTIN [Suspect]
     Indication: ILL-DEFINED DISORDER
     Dates: start: 20031201
  2. CARBAMAZEPINE [Suspect]
     Indication: ILL-DEFINED DISORDER
     Dates: start: 20040201

REACTIONS (4)
  - HYPERSENSITIVITY [None]
  - RASH [None]
  - SWELLING [None]
  - TESTICULAR SWELLING [None]
